FAERS Safety Report 9376552 (Version 3)
Quarter: 2013Q3

REPORT INFORMATION
  Report Type: Spontaneous
  Country: US (occurrence: US)
  Receive Date: 20130701
  Receipt Date: 20130923
  Transmission Date: 20140515
  Serious: Yes (Other)
  Sender: FDA-Public Use
  Company Number: US-PFIZER INC-2013191982

PATIENT
  Age: 77 Year
  Sex: Male

DRUGS (8)
  1. OMEPRAZOLE [Concomitant]
     Dosage: UNK
  2. LAMICTAL [Concomitant]
     Dosage: 1 DF, 2X/DAY
  3. PREDNISONE [Concomitant]
     Dosage: 5 MG, 1X/DAY
  4. SIMVASTATIN [Concomitant]
     Dosage: UNK, 1X/DAY
  5. XELJANZ [Suspect]
     Indication: RHEUMATOID ARTHRITIS
     Dosage: 10 MG, 2X/DAY
     Route: 048
     Dates: end: 20121201
  6. XELJANZ [Suspect]
     Dosage: UNK
     Route: 048
  7. ALEVE [Concomitant]
     Dosage: UNK
  8. CALCIUM [Concomitant]
     Dosage: UNK

REACTIONS (2)
  - Brain neoplasm [Not Recovered/Not Resolved]
  - Lymphoma [Not Recovered/Not Resolved]
